FAERS Safety Report 8273739-8 (Version None)
Quarter: 2012Q2

REPORT INFORMATION
  Report Type: 
  Country: None (occurrence: None)
  Receive Date: 20120409
  Receipt Date: 20120409
  Transmission Date: 20120825
  Serious: Yes (Other)
  Sender: FDA-Public Use
  Company Number: None

PATIENT
  Age: 58 Year
  Sex: Male
  Weight: 68.2 kg

DRUGS (1)
  1. INFLIXIMAB [Suspect]
     Indication: SPONDYLOARTHROPATHY
     Dosage: 900 MG OTHER IV
     Route: 042
     Dates: start: 20090720

REACTIONS (7)
  - REFUSAL OF TREATMENT BY PATIENT [None]
  - RETCHING [None]
  - THROAT IRRITATION [None]
  - VOMITING [None]
  - NAUSEA [None]
  - ANGINA PECTORIS [None]
  - INFUSION RELATED REACTION [None]
